FAERS Safety Report 8098154-1 (Version None)
Quarter: 2012Q1

REPORT INFORMATION
  Report Type: 
  Country: None (occurrence: None)
  Receive Date: 20120128
  Receipt Date: 20110817
  Transmission Date: 20120608
  Serious: No
  Sender: FDA-Public Use
  Company Number: US-ABBOTT-11P-163-0847668-00

PATIENT
  Age: 63 Year
  Sex: Male

DRUGS (5)
  1. OLUX [Concomitant]
     Indication: PSORIASIS
     Dosage: APPLIES TO SCALP ON WEEKEND
  2. CLOBETASOL [Concomitant]
     Indication: PSORIASIS
     Dosage: APPLIES TO AFFECTED AREAS EVERY WEEKEND
  3. DIOVAN [Concomitant]
     Indication: BLOOD PRESSURE
     Route: 048
  4. AMLODIPINE [Concomitant]
     Indication: BLOOD PRESSURE
     Route: 048
  5. HUMIRA [Suspect]
     Indication: PSORIASIS
     Dates: start: 20110201

REACTIONS (3)
  - PAIN [None]
  - ARTHRITIS [None]
  - CONTUSION [None]
